FAERS Safety Report 23077900 (Version 2)
Quarter: 2023Q4

REPORT INFORMATION
  Report Type: Report from Study
  Country: US (occurrence: US)
  Receive Date: 20231018
  Receipt Date: 20231030
  Transmission Date: 20240109
  Serious: Yes (Other)
  Sender: FDA-Public Use
  Company Number: US-GILEAD-2023-0639086

PATIENT
  Sex: Female

DRUGS (3)
  1. AMBRISENTAN [Suspect]
     Active Substance: AMBRISENTAN
     Indication: Pulmonary hypertension
     Dosage: 10 MG, QD
     Route: 065
     Dates: start: 20180326
  2. UPTRAVI [Concomitant]
     Active Substance: SELEXIPAG
  3. ADEMPAS [Concomitant]
     Active Substance: RIOCIGUAT

REACTIONS (10)
  - Chronic kidney disease [Not Recovered/Not Resolved]
  - Loss of consciousness [Unknown]
  - Neoplasm malignant [Unknown]
  - Pulmonary arterial pressure decreased [Unknown]
  - Inflammation [Unknown]
  - Fall [Unknown]
  - Head injury [Unknown]
  - Flushing [Not Recovered/Not Resolved]
  - Vision blurred [Unknown]
  - Product dose omission in error [Unknown]
